FAERS Safety Report 6762427-2 (Version None)
Quarter: 2010Q2

REPORT INFORMATION
  Report Type: 
  Country: None (occurrence: None)
  Receive Date: 20100609
  Receipt Date: 20100520
  Transmission Date: 20101027
  Serious: Yes (Other)
  Sender: FDA-Public Use
  Company Number: CA-ROCHE-707187

PATIENT
  Age: 36 Year
  Sex: Female

DRUGS (4)
  1. HERCEPTIN [Suspect]
     Route: 065
     Dates: start: 20090201
  2. XELODA [Suspect]
     Dosage: START DATE: LATE 2009
     Route: 065
     Dates: start: 20090101
  3. VINORELBINE [Concomitant]
  4. LAPATINIB [Concomitant]

REACTIONS (1)
  - DISEASE PROGRESSION [None]
